FAERS Safety Report 7737015-1 (Version None)
Quarter: 2011Q3

REPORT INFORMATION
  Report Type: 
  Country: None (occurrence: None)
  Receive Date: 20110908
  Receipt Date: 20110826
  Transmission Date: 20111222
  Serious: Yes (Other)
  Sender: FDA-Public Use
  Company Number: US-ELI_LILLY_AND_COMPANY-US201105004774

PATIENT
  Sex: Female

DRUGS (6)
  1. FORTEO [Suspect]
     Dosage: 20 UG, QD
     Route: 058
     Dates: end: 20110606
  2. FORTEO [Suspect]
     Indication: OSTEOPOROSIS
     Dosage: 20 UG, QD
     Route: 058
  3. PLAQUENIL [Concomitant]
  4. FISH OIL [Concomitant]
  5. CALCIUM + VITAMIN D [Concomitant]
  6. MELOXICAM [Concomitant]

REACTIONS (4)
  - SMALL CELL LUNG CANCER STAGE UNSPECIFIED [None]
  - DIZZINESS [None]
  - CARDIAC DISORDER [None]
  - INCORRECT DOSE ADMINISTERED [None]
